FAERS Safety Report 25274579 (Version 1)
Quarter: 2025Q2

REPORT INFORMATION
  Report Type: Spontaneous
  Country: US (occurrence: US)
  Receive Date: 20250506
  Receipt Date: 20250506
  Transmission Date: 20250716
  Serious: Yes (Death)
  Sender: AMGEN
  Company Number: US-AMGEN-USASP2025085588

PATIENT
  Age: 23 Week
  Sex: Male
  Weight: 0.66 kg

DRUGS (8)
  1. INFLIXIMAB [Suspect]
     Active Substance: INFLIXIMAB
     Indication: Capillary leak syndrome
     Route: 065
  2. AMINOPHYLLINE [Concomitant]
     Active Substance: AMINOPHYLLINE
     Indication: Capillary leak syndrome
  3. HUMAN IMMUNOGLOBULIN G [Concomitant]
     Active Substance: HUMAN IMMUNOGLOBULIN G
     Indication: Capillary leak syndrome
  4. ALBUMIN HUMAN [Concomitant]
     Active Substance: ALBUMIN HUMAN
     Indication: Capillary leak syndrome
  5. DOPAMINE [Concomitant]
     Active Substance: DOPAMINE HYDROCHLORIDE
     Indication: Capillary leak syndrome
  6. DOBUTAMINE [Concomitant]
     Active Substance: DOBUTAMINE HYDROCHLORIDE
     Indication: Capillary leak syndrome
  7. NOREPINEPHRINE [Concomitant]
     Active Substance: NOREPINEPHRINE
     Indication: Capillary leak syndrome
  8. VASOPRESSIN [Concomitant]
     Active Substance: VASOPRESSIN
     Indication: Capillary leak syndrome

REACTIONS (3)
  - Systemic inflammatory response syndrome [Fatal]
  - Generalised oedema [Fatal]
  - Off label use [Unknown]
